FAERS Safety Report 5135635-4 (Version None)
Quarter: 2006Q4

REPORT INFORMATION
  Report Type: 
  Country: None (occurrence: None)
  Receive Date: 20061026
  Receipt Date: 20060913
  Transmission Date: 20070319
  Serious: Yes (Hospitalization)
  Sender: FDA-Public Use
  Company Number: JP-ROCHE-463616

PATIENT
  Age: 82 Year
  Sex: Female
  Weight: 39 kg

DRUGS (17)
  1. ROCALTROL [Suspect]
     Indication: DRUG USE FOR UNKNOWN INDICATION
     Route: 048
     Dates: start: 20060215, end: 20060708
  2. MADOPAR [Suspect]
     Indication: PARKINSON'S DISEASE
     Route: 048
     Dates: start: 20060303, end: 20060705
  3. MADOPAR [Suspect]
     Route: 048
     Dates: start: 20060706, end: 20060706
  4. MADOPAR [Suspect]
     Route: 048
     Dates: start: 20060707, end: 20060707
  5. MADOPAR [Suspect]
     Route: 048
     Dates: start: 20060708, end: 20060708
  6. CALCIUM ASPARTATE [Concomitant]
     Dosage: TRADE NAME REPORTED AS 'ASTOS-CA'
     Route: 048
     Dates: start: 20060215, end: 20060708
  7. CIBENOL [Concomitant]
     Route: 048
     Dates: end: 20060708
  8. ASPIRIN [Concomitant]
     Route: 048
     Dates: end: 20060708
  9. WARFARIN SODIUM [Concomitant]
     Route: 048
     Dates: end: 20060708
  10. FRANDOL [Concomitant]
     Dosage: DOSE FORM REPORTED AS TAPE
     Route: 061
     Dates: end: 20060708
  11. LASIX [Concomitant]
     Route: 048
     Dates: end: 20060708
  12. RENIVACE [Concomitant]
     Route: 048
     Dates: end: 20060708
  13. LANSOPRAZOLE [Concomitant]
     Route: 048
     Dates: end: 20060708
  14. GASMOTIN [Concomitant]
     Route: 048
     Dates: end: 20060708
  15. LOXONIN [Concomitant]
     Route: 048
     Dates: end: 20060708
  16. DOGMATYL [Concomitant]
     Route: 048
     Dates: end: 20060708
  17. ALLOPURINOL [Concomitant]
     Route: 048
     Dates: end: 20060708

REACTIONS (5)
  - ANOREXIA [None]
  - ASPARTATE AMINOTRANSFERASE INCREASED [None]
  - LEUKOPENIA [None]
  - LIVER DISORDER [None]
  - WHITE BLOOD CELL COUNT DECREASED [None]
